FAERS Safety Report 6323867-9 (Version None)
Quarter: 2009Q3

REPORT INFORMATION
  Report Type: 
  Country: None (occurrence: None)
  Receive Date: 20090824
  Receipt Date: 20090616
  Transmission Date: 20100115
  Serious: No
  Sender: FDA-Public Use
  Company Number: US-ABBOTT-09P-163-0577388-00

PATIENT
  Sex: Male
  Weight: 81.72 kg

DRUGS (11)
  1. NIASPAN [Suspect]
     Indication: HIGH DENSITY LIPOPROTEIN DECREASED
     Route: 048
     Dates: start: 20060101, end: 20080101
  2. LANTUS [Concomitant]
     Indication: TYPE 1 DIABETES MELLITUS
     Route: 058
  3. HUMALOG [Concomitant]
     Indication: TYPE 1 DIABETES MELLITUS
     Route: 058
  4. COREG [Concomitant]
     Indication: CARDIAC DISORDER
     Route: 048
  5. LOTENSIN [Concomitant]
     Indication: DRUG USE FOR UNKNOWN INDICATION
     Route: 048
  6. ZOCOR [Concomitant]
     Indication: DRUG USE FOR UNKNOWN INDICATION
     Route: 048
  7. ASPIRIN [Concomitant]
     Indication: CARDIAC DISORDER
     Route: 048
  8. CYMBALTA [Concomitant]
     Indication: PAIN IN EXTREMITY
     Route: 048
  9. NEURONTIN [Concomitant]
     Indication: PAIN IN EXTREMITY
     Route: 048
  10. PULMICORT-100 [Concomitant]
     Indication: ASTHMA
  11. ARANESP [Concomitant]
     Indication: ASTHMA
     Route: 050

REACTIONS (1)
  - FLUSHING [None]
